FAERS Safety Report 7292569-7 (Version None)
Quarter: 2011Q1

REPORT INFORMATION
  Report Type: 
  Country: None (occurrence: None)
  Receive Date: 20110215
  Receipt Date: 20110215
  Transmission Date: 20110831
  Serious: Yes (Other)
  Sender: FDA-Public Use
  Company Number: None

PATIENT
  Age: 49 Year
  Sex: Female
  Weight: 94.8018 kg

DRUGS (1)
  1. ALCOHOL PADS TRIAD [Suspect]
     Dosage: PT ON FLOLAN IV THERAPY, USES ALCOHOL PADS WITH THAT THERAPY

REACTIONS (1)
  - INFECTION [None]
